FAERS Safety Report 9186222 (Version 3)
Quarter: 2013Q2

REPORT INFORMATION
  Report Type: Spontaneous
  Country: TW (occurrence: TW)
  Receive Date: 20130325
  Receipt Date: 20130612
  Transmission Date: 20140414
  Serious: Yes (Hospitalization)
  Sender: FDA-Public Use
  Company Number: TW-ABBOTT-13P-153-1064284-00

PATIENT
  Age: 20 Year
  Sex: Male
  Weight: 46 kg

DRUGS (2)
  1. HUMIRA [Suspect]
     Indication: CROHN^S DISEASE
     Route: 058
     Dates: start: 20130207
  2. HUMIRA [Suspect]
     Dates: start: 20130502

REACTIONS (3)
  - Pyrexia [Recovered/Resolved]
  - Vomiting [Unknown]
  - Abdominal pain [Unknown]
